FAERS Safety Report 10767473 (Version 1)
Quarter: 2015Q1

REPORT INFORMATION
  Report Type: Spontaneous
  Country: US (occurrence: US)
  Receive Date: 20150205
  Receipt Date: 20150205
  Transmission Date: 20150721
  Serious: Yes (Other)
  Sender: FDA-Public Use
  Company Number: US-PFIZER INC-2015045289

PATIENT
  Sex: Female

DRUGS (1)
  1. AVINZA [Suspect]
     Active Substance: MORPHINE SULFATE

REACTIONS (1)
  - Terminal state [Not Recovered/Not Resolved]
